FAERS Safety Report 14624010 (Version 1)
Quarter: 2018Q1

REPORT INFORMATION
  Report Type: Spontaneous
  Country: FR (occurrence: FR)
  Receive Date: 20180312
  Receipt Date: 20180312
  Transmission Date: 20180509
  Serious: Yes (Hospitalization)
  Sender: FDA-Public Use
  Company Number: FR-ASTRAZENECA-2018SE29362

PATIENT
  Age: 18 Year
  Sex: Female

DRUGS (6)
  1. PIVALONE [Suspect]
     Active Substance: TIXOCORTOL PIVALATE
     Indication: NASOPHARYNGITIS
     Route: 045
     Dates: start: 20180203
  2. DIMETANE [Suspect]
     Active Substance: BROMPHENIRAMINE MALEATE
     Indication: COUGH
     Dosage: 133 MG/100 ML, DAILY
     Route: 048
     Dates: start: 20180203
  3. ZOMIGORO [Suspect]
     Active Substance: ZOLMITRIPTAN
     Indication: MIGRAINE
     Dosage: 1.0DF UNKNOWN
     Route: 048
     Dates: start: 2015
  4. OFLOCET [Suspect]
     Active Substance: OFLOXACIN
     Indication: OTORRHOEA
     Route: 001
     Dates: start: 20180203
  5. TIAPROFENIC ACID [Suspect]
     Active Substance: TIAPROFENIC ACID
     Indication: OTORRHOEA
     Route: 048
     Dates: start: 20180203, end: 20180206
  6. OMEPRAZOLE. [Suspect]
     Active Substance: OMEPRAZOLE
     Indication: GASTROOESOPHAGEAL REFLUX DISEASE
     Route: 048
     Dates: start: 20180203, end: 20180206

REACTIONS (2)
  - Rash maculo-papular [Recovering/Resolving]
  - Oedema peripheral [Recovering/Resolving]

NARRATIVE: CASE EVENT DATE: 20180206
